FAERS Safety Report 15907478 (Version 1)
Quarter: 2019Q1

REPORT INFORMATION
  Report Type: Report from Study
  Country: US (occurrence: US)
  Receive Date: 20190204
  Receipt Date: 20190204
  Transmission Date: 20190417
  Serious: Yes (Death)
  Sender: FDA-Public Use
  Company Number: US-SA-2019SA028931

PATIENT
  Age: 59 Year
  Sex: Male
  Weight: 139.3 kg

DRUGS (3)
  1. FLUDARABINE PHOSPHATE. [Suspect]
     Active Substance: FLUDARABINE PHOSPHATE
     Indication: ACUTE MYELOID LEUKAEMIA
     Dosage: UNK
     Route: 041
     Dates: start: 20120301, end: 20120304
  2. BUSULFAN. [Suspect]
     Active Substance: BUSULFAN
     Indication: ACUTE MYELOID LEUKAEMIA
     Dosage: UNK
     Route: 065
     Dates: start: 20120301, end: 20120304
  3. CLOFARABINE. [Suspect]
     Active Substance: CLOFARABINE
     Indication: ACUTE MYELOID LEUKAEMIA
     Dosage: UNK
     Route: 041
     Dates: start: 20120301, end: 20120304

REACTIONS (3)
  - Graft versus host disease in gastrointestinal tract [Fatal]
  - Febrile neutropenia [Recovered/Resolved]
  - Graft versus host disease in liver [Recovered/Resolved]

NARRATIVE: CASE EVENT DATE: 20120315
